FAERS Safety Report 14698899 (Version 1)
Quarter: 2018Q1

REPORT INFORMATION
  Report Type: Spontaneous
  Country: US (occurrence: US)
  Receive Date: 20180330
  Receipt Date: 20180330
  Transmission Date: 20180509
  Serious: No
  Sender: FDA-Public Use
  Company Number: US-TEVA-2018-US-866124

PATIENT
  Sex: Female

DRUGS (2)
  1. CLONAZEPAM. [Suspect]
     Active Substance: CLONAZEPAM
     Indication: PANIC DISORDER
     Dosage: 3 MILLIGRAM DAILY; 1 MG OF CLONAZEPAM IN THE MORNING AND 2 MG OF CLONAZEPAM AT NIGHT
  2. CLONAZEPAM. [Suspect]
     Active Substance: CLONAZEPAM
     Dosage: 1 MILLIGRAM DAILY;

REACTIONS (7)
  - Drug screen negative [Unknown]
  - Diarrhoea [Unknown]
  - Somnolence [Unknown]
  - Food craving [Unknown]
  - Eating disorder [Unknown]
  - Panic attack [Unknown]
  - Abdominal pain upper [Unknown]

NARRATIVE: CASE EVENT DATE: 201802
